FAERS Safety Report 8865912 (Version 1)
Quarter: 2012Q4

REPORT INFORMATION
  Report Type: 
  Country: AU (occurrence: AU)
  Receive Date: 20121025
  Receipt Date: 20121025
  Transmission Date: 20130627
  Serious: Yes (Life-Threatening)
  Sender: FDA-Public Use
  Company Number: AU-009507513-1210AUS010709

PATIENT
  Age: 68 Year
  Sex: Male
  Weight: 100 kg

DRUGS (1)
  1. ESMERON [Suspect]
     Indication: ANAESTHESIA
     Dosage: UNK
     Route: 042
     Dates: start: 20120403

REACTIONS (3)
  - Radioallergosorbent test positive [Unknown]
  - Skin test positive [Unknown]
  - Anaphylactic reaction [Recovered/Resolved]
